FAERS Safety Report 13319544 (Version 2)
Quarter: 2017Q1

REPORT INFORMATION
  Report Type: Report from Study
  Country: CO (occurrence: CO)
  Receive Date: 20170310
  Receipt Date: 20170320
  Transmission Date: 20170428
  Serious: Yes (Hospitalization)
  Sender: FDA-Public Use
  Company Number: CO-BAYER-2017-026869

PATIENT
  Age: 75 Year
  Sex: Male

DRUGS (2)
  1. ADEMPAS [Suspect]
     Active Substance: RIOCIGUAT
     Indication: PULMONARY HYPERTENSION
     Dosage: 1 MG, Q8HR
     Route: 048
     Dates: end: 20170220
  2. ADEMPAS [Suspect]
     Active Substance: RIOCIGUAT
     Indication: PULMONARY HYPERTENSION
     Dosage: 0.5 MG, Q8HR
     Route: 048
     Dates: start: 20170201

REACTIONS (4)
  - Fall [Recovering/Resolving]
  - Dizziness [Recovering/Resolving]
  - Dyspepsia [Not Recovered/Not Resolved]
  - Head injury [Recovering/Resolving]

NARRATIVE: CASE EVENT DATE: 20170204
